FAERS Safety Report 6708697-8 (Version None)
Quarter: 2010Q2

REPORT INFORMATION
  Report Type: 
  Country: None (occurrence: None)
  Receive Date: 20100503
  Receipt Date: 20100423
  Transmission Date: 20101027
  Serious: Yes (Other)
  Sender: FDA-Public Use
  Company Number: MY-MERCK-1004MYS00005

PATIENT
  Sex: Male

DRUGS (3)
  1. SINGULAIR [Suspect]
     Indication: ASTHMA
     Route: 048
     Dates: start: 20100101, end: 20100101
  2. FLUTICASONE PROPIONATE AND SALMETEROL XINAFOATE [Suspect]
     Route: 048
  3. ALBUTEROL SULFATE [Suspect]
     Route: 048

REACTIONS (1)
  - BLINDNESS TRANSIENT [None]
